FAERS Safety Report 4381947-1 (Version None)
Quarter: 2004Q2

REPORT INFORMATION
  Report Type: 
  Country: None (occurrence: None)
  Receive Date: 20040615
  Receipt Date: 20040601
  Transmission Date: 20050107
  Serious: Yes (Other)
  Sender: FDA-Public Use
  Company Number: 2004-DE-03126GD

PATIENT
  Age: 33 Year
  Sex: Male

DRUGS (5)
  1. AZATHIOPRINE [Suspect]
     Indication: BEHCET'S SYNDROME
     Dosage: 2.5 MG/KG/DAY
  2. CYCLOPHOSPHAMIDE [Suspect]
     Indication: BEHCET'S SYNDROME
  3. PREDNISOLONE [Suspect]
     Indication: BEHCET'S SYNDROME
     Dosage: 7.5 MG
  4. CORTICOSTEROIDS (CORTICOSTEROIDS) [Suspect]
     Indication: BEHCET'S SYNDROME
  5. CYCLOSPORINE [Suspect]
     Indication: BEHCET'S SYNDROME

REACTIONS (6)
  - CATARACT [None]
  - CHOROIDITIS [None]
  - DISEASE RECURRENCE [None]
  - DRUG EFFECT DECREASED [None]
  - VISUAL ACUITY REDUCED [None]
  - VITREOUS FLOATERS [None]
